FAERS Safety Report 4312383-1 (Version None)
Quarter: 2004Q1

REPORT INFORMATION
  Report Type: 
  Country: None (occurrence: None)
  Receive Date: 20040303
  Receipt Date: 20040220
  Transmission Date: 20041129
  Serious: Yes (Hospitalization)
  Sender: FDA-Public Use
  Company Number: 2004011642

PATIENT
  Age: 79 Year
  Sex: Male
  Weight: 68 kg

DRUGS (2)
  1. LIPITOR [Suspect]
     Indication: ILL-DEFINED DISORDER
     Dosage: 10 MG (DAILY), ORAL
     Route: 048
     Dates: end: 20040214
  2. HYOSCYAMINE (HYOSCYAMINE) [Concomitant]

REACTIONS (7)
  - ABDOMINAL PAIN [None]
  - ALANINE AMINOTRANSFERASE DECREASED [None]
  - ANTINUCLEAR ANTIBODY POSITIVE [None]
  - BLOOD GLUCOSE INCREASED [None]
  - DEHYDRATION [None]
  - PANCREATITIS ACUTE [None]
  - RED BLOOD CELL SEDIMENTATION RATE ABNORMAL [None]
